FAERS Safety Report 4639167-9 (Version None)
Quarter: 2005Q2

REPORT INFORMATION
  Report Type: 
  Country: None (occurrence: None)
  Receive Date: 20050418
  Receipt Date: 20050406
  Transmission Date: 20051028
  Serious: Yes (Disabling)
  Sender: FDA-Public Use
  Company Number: 200502839

PATIENT
  Age: 43 Year
  Sex: Female

DRUGS (5)
  1. BOTOX [Suspect]
     Indication: TORTICOLLIS
     Dosage: UNITS
     Dates: start: 20050107
  2. BOTOX [Suspect]
     Indication: TORTICOLLIS
     Dosage: 200 UNITS PRN IM
     Route: 030
     Dates: start: 20030701
  3. BOTOX [Suspect]
     Indication: TORTICOLLIS
     Dosage: 300 UNITS PRN IM
     Route: 030
     Dates: start: 20020701
  4. INDERAL [Concomitant]
  5. NEXIUM [Concomitant]

REACTIONS (3)
  - ASTHENIA [None]
  - HEADACHE [None]
  - POSTURE ABNORMAL [None]
